FAERS Safety Report 5029178-6 (Version None)
Quarter: 2006Q2

REPORT INFORMATION
  Report Type: 
  Country: None (occurrence: None)
  Receive Date: 20060613
  Receipt Date: 20060601
  Transmission Date: 20061013
  Serious: Yes (Death)
  Sender: FDA-Public Use
  Company Number: 110794ISR

PATIENT
  Age: 42 Year
  Sex: Male

DRUGS (5)
  1. DIAZEPAM [Suspect]
  2. CLOZAPINE [Suspect]
     Dosage: ORAL
     Route: 048
     Dates: start: 20040810, end: 20050316
  3. CLOZAPINE [Suspect]
     Dosage: ORAL
     Route: 048
     Dates: start: 20050317
  4. CHLORPROMAZINE [Suspect]
  5. ANTIPSYCHOTICS [Suspect]

REACTIONS (1)
  - PYREXIA [None]
